FAERS Safety Report 24954997 (Version 1)
Quarter: 2025Q1

REPORT INFORMATION
  Report Type: Spontaneous
  Country: CL (occurrence: CL)
  Receive Date: 20250211
  Receipt Date: 20250211
  Transmission Date: 20250409
  Serious: Yes (Life-Threatening, Hospitalization)
  Sender: ACCORD
  Company Number: CL-MLMSERVICE-20250128-PI370717-00162-2

PATIENT
  Age: 77 Year
  Sex: Female

DRUGS (2)
  1. FUROSEMIDE [Suspect]
     Active Substance: FUROSEMIDE
     Indication: Nephrotic syndrome
  2. METOLAZONE [Suspect]
     Active Substance: METOLAZONE
     Indication: Nephrotic syndrome

REACTIONS (2)
  - Metabolic alkalosis [Recovering/Resolving]
  - Altered state of consciousness [Recovering/Resolving]
